FAERS Safety Report 20849680 (Version 15)
Quarter: 2025Q2

REPORT INFORMATION
  Report Type: Report from Study
  Country: US (occurrence: US)
  Receive Date: 20220519
  Receipt Date: 20250616
  Transmission Date: 20250717
  Serious: Yes (Hospitalization, Other)
  Sender: TAKEDA
  Company Number: US-TAKEDA-2022TUS032352

PATIENT
  Age: 76 Year
  Sex: Female
  Weight: 79 kg

DRUGS (33)
  1. HUMAN IMMUNOGLOBULIN G [Suspect]
     Active Substance: HUMAN IMMUNOGLOBULIN G
     Indication: Immunodeficiency common variable
     Dosage: 30 GRAM, Q4WEEKS
  2. HUMAN IMMUNOGLOBULIN G [Suspect]
     Active Substance: HUMAN IMMUNOGLOBULIN G
     Dosage: 30 GRAM, Q4WEEKS
  3. VANCOMYCIN [Suspect]
     Active Substance: VANCOMYCIN
     Indication: Product used for unknown indication
  4. DIPHENHYDRAMINE [Concomitant]
     Active Substance: DIPHENHYDRAMINE
  5. Ester c [Concomitant]
  6. ERTAPENEM [Concomitant]
     Active Substance: ERTAPENEM
  7. EPINEPHRINE [Concomitant]
     Active Substance: EPINEPHRINE
  8. SODIUM CHLORIDE [Concomitant]
     Active Substance: SODIUM CHLORIDE
  9. LISINOPRIL [Concomitant]
     Active Substance: LISINOPRIL
  10. TRAMADOL HCL [Concomitant]
     Active Substance: TRAMADOL HYDROCHLORIDE
  11. SOTALOL [Concomitant]
     Active Substance: SOTALOL
  12. JANTOVEN [Concomitant]
     Active Substance: WARFARIN SODIUM
  13. ACETAMINOPHEN [Concomitant]
     Active Substance: ACETAMINOPHEN
  14. SINGULAIR [Concomitant]
     Active Substance: MONTELUKAST SODIUM
  15. CRESTOR [Concomitant]
     Active Substance: ROSUVASTATIN CALCIUM
  16. PLAVIX [Concomitant]
     Active Substance: CLOPIDOGREL BISULFATE
  17. VITAMIN B COMPLEX [Concomitant]
     Active Substance: CYANOCOBALAMIN\DEXPANTHENOL\NIACINAMIDE\PYRIDOXINE HYDROCHLORIDE\RIBOFLAVIN 5^-PHOSPHATE SODIUM\THIA
  18. ASPIRIN [Concomitant]
     Active Substance: ASPIRIN
  19. LIDOCAINE [Concomitant]
     Active Substance: LIDOCAINE
  20. ONDANSETRON [Concomitant]
     Active Substance: ONDANSETRON
  21. CVS coenzyme q 10 [Concomitant]
  22. SYNTHROID [Concomitant]
     Active Substance: LEVOTHYROXINE SODIUM
  23. MUCINEX [Concomitant]
     Active Substance: GUAIFENESIN
  24. PREDNISONE [Concomitant]
     Active Substance: PREDNISONE
  25. UNITHROID [Concomitant]
     Active Substance: LEVOTHYROXINE SODIUM
  26. WARFARIN SODIUM [Concomitant]
     Active Substance: WARFARIN SODIUM
  27. VITAMIN D3 [Concomitant]
     Active Substance: CHOLECALCIFEROL
  28. COUMADIN [Concomitant]
     Active Substance: WARFARIN SODIUM
  29. ALLOPURINOL [Concomitant]
     Active Substance: ALLOPURINOL
  30. COREG [Concomitant]
     Active Substance: CARVEDILOL
  31. TOPROL XL [Concomitant]
     Active Substance: METOPROLOL SUCCINATE
  32. DIPHENHYDRAMINE HYDROCHLORIDE [Concomitant]
     Active Substance: DIPHENHYDRAMINE HYDROCHLORIDE
  33. AZITHROMYCIN [Concomitant]
     Active Substance: AZITHROMYCIN

REACTIONS (22)
  - Fungaemia [Unknown]
  - Pneumonia [Unknown]
  - Blood pressure decreased [Recovering/Resolving]
  - Dehydration [Recovering/Resolving]
  - Ventricular tachycardia [Unknown]
  - Carotid artery stenosis [Unknown]
  - Syncope [Unknown]
  - Pyrexia [Unknown]
  - Sinus congestion [Unknown]
  - Respiratory tract infection [Unknown]
  - Bacterial infection [Unknown]
  - Drug hypersensitivity [Unknown]
  - Productive cough [Unknown]
  - Procedural pain [Unknown]
  - Illness [Unknown]
  - Multiple allergies [Not Recovered/Not Resolved]
  - Laryngitis [Unknown]
  - Pharyngitis streptococcal [Unknown]
  - Bronchitis [Unknown]
  - Pharyngeal erythema [Unknown]
  - Sinusitis [Unknown]
  - Back pain [Unknown]

NARRATIVE: CASE EVENT DATE: 20220405
